FAERS Safety Report 23297847 (Version 7)
Quarter: 2024Q1

REPORT INFORMATION
  Report Type: Spontaneous
  Country: US (occurrence: US)
  Receive Date: 20231214
  Receipt Date: 20240216
  Transmission Date: 20240410
  Serious: No
  Sender: FDA-Public Use
  Company Number: US-AstraZeneca-CH-00526989A

PATIENT
  Age: 53 Year
  Sex: Female

DRUGS (1)
  1. STRENSIQ [Suspect]
     Active Substance: ASFOTASE ALFA
     Indication: Hypophosphatasia
     Dosage: 118 MILLIGRAM, TIW
     Route: 058
     Dates: start: 20231211

REACTIONS (4)
  - Injection site mass [Recovering/Resolving]
  - Injection site pain [Recovered/Resolved]
  - Injection site pruritus [Unknown]
  - Injection site erythema [Recovering/Resolving]

NARRATIVE: CASE EVENT DATE: 20231201
